FAERS Safety Report 8113310-1 (Version None)
Quarter: 2012Q1

REPORT INFORMATION
  Report Type: 
  Country: None (occurrence: None)
  Receive Date: 20120203
  Receipt Date: 20120126
  Transmission Date: 20120608
  Serious: Yes (Hospitalization)
  Sender: FDA-Public Use
  Company Number: PHHY2011US05431

PATIENT
  Sex: Female

DRUGS (2)
  1. EXJADE [Suspect]
     Indication: SICKLE CELL ANAEMIA
     Dosage: 250 MG, QD
     Route: 048
  2. EXJADE [Suspect]
     Dosage: 250 MG, QD
     Route: 048

REACTIONS (4)
  - RENAL DISORDER [None]
  - BLOOD URINE PRESENT [None]
  - SICKLE CELL ANAEMIA WITH CRISIS [None]
  - SINUSITIS [None]
